FAERS Safety Report 12712234 (Version 2)
Quarter: 2017Q3

REPORT INFORMATION
  Report Type: Spontaneous
  Country: US (occurrence: US)
  Receive Date: 20160902
  Receipt Date: 20170718
  Transmission Date: 20171127
  Serious: Yes (Hospitalization)
  Sender: FDA-Public Use
  Company Number: US-JNJFOC-20160824937

PATIENT
  Age: 42 Year
  Sex: Female

DRUGS (5)
  1. LOVASTATIN. [Concomitant]
     Active Substance: LOVASTATIN
     Indication: RENAL DISORDER
     Route: 065
     Dates: start: 2008
  2. INVOKANA [Suspect]
     Active Substance: CANAGLIFLOZIN
     Indication: DIABETES MELLITUS MANAGEMENT
     Route: 048
     Dates: start: 20151002, end: 20151013
  3. INVOKANA [Suspect]
     Active Substance: CANAGLIFLOZIN
     Indication: DIABETES MELLITUS MANAGEMENT
     Route: 048
     Dates: start: 201509
  4. LISINOPRIL. [Concomitant]
     Active Substance: LISINOPRIL
     Indication: BLOOD CHOLESTEROL INCREASED
     Route: 065
     Dates: start: 2004
  5. SYNTHROID [Concomitant]
     Active Substance: LEVOTHYROXINE SODIUM
     Indication: HYPOTHYROIDISM
     Route: 065
     Dates: start: 2008

REACTIONS (2)
  - Pancreatitis [Unknown]
  - Diabetic ketoacidosis [Recovering/Resolving]

NARRATIVE: CASE EVENT DATE: 20151013
